FAERS Safety Report 6834767-X (Version None)
Quarter: 2010Q3

REPORT INFORMATION
  Report Type: 
  Country: None (occurrence: None)
  Receive Date: 20100712
  Receipt Date: 20070426
  Transmission Date: 20110219
  Serious: No
  Sender: FDA-Public Use
  Company Number: US-PFIZER INC-2007034865

PATIENT
  Sex: Male
  Weight: 97.727 kg

DRUGS (4)
  1. CHANTIX [Suspect]
     Indication: SMOKING CESSATION THERAPY
     Dates: start: 20070412
  2. HERBAL PREPARATION INGREDIENTS UNKNOWN [Concomitant]
     Indication: BLOOD GLUCOSE ABNORMAL
  3. NIASPAN [Concomitant]
     Indication: BLOOD CHOLESTEROL
  4. ZETIA [Concomitant]

REACTIONS (1)
  - BLOOD GLUCOSE INCREASED [None]
